FAERS Safety Report 10567292 (Version 2)
Quarter: 2015Q2

REPORT INFORMATION
  Report Type: Spontaneous
  Country: US (occurrence: US)
  Receive Date: 20141106
  Receipt Date: 20150410
  Transmission Date: 20150821
  Serious: No
  Sender: FDA-Public Use
  Company Number: US-AMGEN-USASP2014084413

PATIENT
  Age: 87 Year
  Sex: Female

DRUGS (2)
  1. ENBREL [Suspect]
     Active Substance: ETANERCEPT
     Indication: RHEUMATOID ARTHRITIS
     Dosage: 50 MG, QWK
     Route: 065
     Dates: start: 20130301
  2. ENBREL [Suspect]
     Active Substance: ETANERCEPT
     Dosage: UNK
     Route: 065

REACTIONS (4)
  - Eye disorder [Not Recovered/Not Resolved]
  - Sensitivity to weather change [Not Recovered/Not Resolved]
  - Hypersensitivity [Not Recovered/Not Resolved]
  - Drug dose omission [Unknown]

NARRATIVE: CASE EVENT DATE: 20141030
